FAERS Safety Report 9006465 (Version 4)
Quarter: 2015Q4

REPORT INFORMATION
  Report Type: Spontaneous
  Country: US (occurrence: US)
  Receive Date: 20130110
  Receipt Date: 20151012
  Transmission Date: 20160305
  Serious: No
  Sender: FDA-Public Use
  Company Number: US-PFIZER INC-2013003747

PATIENT
  Sex: Female

DRUGS (1)
  1. DETROL [Suspect]
     Active Substance: TOLTERODINE TARTRATE
     Indication: BLADDER DISORDER
     Dosage: UNK

REACTIONS (4)
  - Mucosal dryness [Not Recovered/Not Resolved]
  - Skin discolouration [Unknown]
  - Dry skin [Not Recovered/Not Resolved]
  - Infection [Unknown]
